FAERS Safety Report 5933383-1 (Version None)
Quarter: 2008Q4

REPORT INFORMATION
  Report Type: 
  Country: None (occurrence: None)
  Receive Date: 20081023
  Receipt Date: 20081020
  Transmission Date: 20090506
  Serious: Yes (Death)
  Sender: FDA-Public Use
  Company Number: CLOF-1000318

PATIENT
  Age: 78 Year
  Sex: Male

DRUGS (3)
  1. CLOLAR [Suspect]
     Indication: ACUTE MYELOID LEUKAEMIA
     Dosage: 22.5 MG/M2, QDX5, INTRAVENOUS
     Route: 042
  2. IDARUBICIN HCL [Suspect]
     Indication: ACUTE MYELOID LEUKAEMIA
     Dosage: 8 MG, QDX3, INTRAVENOUS
     Route: 042
  3. CYTARABINE [Suspect]
     Indication: ACUTE MYELOID LEUKAEMIA
     Dosage: 1 GM/M2, QDX 5, INTRAVENOUS
     Route: 042

REACTIONS (17)
  - CHOLESTASIS [None]
  - ENDOCARDITIS NONINFECTIVE [None]
  - HAEMODIALYSIS [None]
  - HEPATIC FAILURE [None]
  - HEPATOMEGALY [None]
  - HYPERBILIRUBINAEMIA [None]
  - LACTOBACILLUS INFECTION [None]
  - LIVER DISORDER [None]
  - PULMONARY CONGESTION [None]
  - PULMONARY HAEMORRHAGE [None]
  - PULMONARY THROMBOSIS [None]
  - RENAL FAILURE ACUTE [None]
  - RENAL TUBULAR NECROSIS [None]
  - RENAL VESSEL DISORDER [None]
  - SEPSIS [None]
  - STAPHYLOCOCCAL INFECTION [None]
  - THROMBOSIS [None]
